FAERS Safety Report 9387243 (Version 1)
Quarter: 2013Q3

REPORT INFORMATION
  Report Type: Spontaneous
  Country: FR (occurrence: FR)
  Receive Date: 20130708
  Receipt Date: 20130708
  Transmission Date: 20140515
  Serious: Yes (Hospitalization, Other)
  Sender: FDA-Public Use
  Company Number: FR-MYLANLABS-2013S1014349

PATIENT
  Age: 46 Year
  Sex: Female

DRUGS (2)
  1. CARBIDOPA LEVODOPA [Suspect]
     Indication: PARKINSON^S DISEASE
     Route: 065
  2. ROPINIROLE [Concomitant]
     Indication: PARKINSON^S DISEASE
     Route: 065

REACTIONS (5)
  - Dyskinesia [Recovering/Resolving]
  - Drug effect decreased [Recovering/Resolving]
  - Bone disorder [Unknown]
  - Foot fracture [Unknown]
  - Lumbar vertebral fracture [Unknown]
